FAERS Safety Report 21999104 (Version 1)
Quarter: 2023Q1

REPORT INFORMATION
  Report Type: Spontaneous
  Country: US (occurrence: US)
  Receive Date: 20230216
  Receipt Date: 20230216
  Transmission Date: 20230418
  Serious: No
  Sender: FDA-Public Use
  Company Number: US-SA-SAC20230214000171

PATIENT

DRUGS (2)
  1. APIDRA [Suspect]
     Active Substance: INSULIN GLULISINE
     Dosage: 5 OR 6 UNITS
     Route: 065
  2. APIDRA [Suspect]
     Active Substance: INSULIN GLULISINE
     Dosage: 10 OR 12 UNITS, MULTIPLE TIMES PER DAY

REACTIONS (2)
  - Blood glucose increased [Recovered/Resolved]
  - Therapeutic response decreased [Unknown]
